FAERS Safety Report 8019372-4 (Version None)
Quarter: 2012Q1

REPORT INFORMATION
  Report Type: 
  Country: None (occurrence: None)
  Receive Date: 20120103
  Receipt Date: 20111221
  Transmission Date: 20120608
  Serious: Yes (Other)
  Sender: FDA-Public Use
  Company Number: PHHY2011US03084

PATIENT
  Sex: Male
  Weight: 92.5 kg

DRUGS (4)
  1. LISINOPRIL [Concomitant]
  2. GLEEVEC [Suspect]
     Indication: CHRONIC MYELOID LEUKAEMIA
     Dosage: 300 MG, QD
     Route: 048
     Dates: start: 20070207
  3. GLEEVEC [Suspect]
     Dosage: 200 MG, QD
  4. GLEEVEC [Suspect]
     Dosage: 300 MG, DAILY
     Route: 048
     Dates: start: 20080201

REACTIONS (2)
  - LIVER DISORDER [None]
  - RENAL DISORDER [None]
